FAERS Safety Report 16739709 (Version 1)
Quarter: 2019Q3

REPORT INFORMATION
  Report Type: Spontaneous
  Country: IT (occurrence: IT)
  Receive Date: 20190826
  Receipt Date: 20190826
  Transmission Date: 20191005
  Serious: Yes (Other)
  Sender: FDA-Public Use
  Company Number: PHHY2019IT194549

PATIENT
  Age: 11 Year
  Sex: Male

DRUGS (3)
  1. RITUXIMAB. [Suspect]
     Active Substance: RITUXIMAB
     Indication: NEPHROTIC SYNDROME
     Dosage: AT THE FIRST INFUSION
     Route: 041
  2. PREDNISONE. [Suspect]
     Active Substance: PREDNISONE
     Indication: NEPHROTIC SYNDROME
     Route: 048
  3. MYCOPHENOLATE MOFETIL. [Suspect]
     Active Substance: MYCOPHENOLATE MOFETIL
     Indication: NEPHROTIC SYNDROME
     Route: 048

REACTIONS (7)
  - Blood immunoglobulin A decreased [Not Recovered/Not Resolved]
  - Epstein-Barr virus infection [Unknown]
  - Blood immunoglobulin M increased [Unknown]
  - Human herpesvirus 6 infection [Unknown]
  - Lymphadenopathy [Unknown]
  - Hypogammaglobulinaemia [Unknown]
  - Pneumonia [Unknown]
